FAERS Safety Report 7517045-5 (Version None)
Quarter: 2011Q2

REPORT INFORMATION
  Report Type: 
  Country: None (occurrence: None)
  Receive Date: 20110601
  Receipt Date: 20110518
  Transmission Date: 20111010
  Serious: Yes (Other)
  Sender: FDA-Public Use
  Company Number: CA-JNJFOC-20110509216

PATIENT
  Sex: Female
  Weight: 156.49 kg

DRUGS (16)
  1. BENADRYL [Concomitant]
     Indication: PREMEDICATION
     Route: 048
  2. CLONAZEPAM [Concomitant]
     Indication: ANXIETY
  3. REMICADE [Suspect]
     Indication: SARCOIDOSIS
     Route: 042
     Dates: start: 20110518
  4. ACETAMINOPHEN [Concomitant]
     Indication: PREMEDICATION
  5. CRESTOR [Concomitant]
     Indication: BLOOD CHOLESTEROL INCREASED
  6. NEXIUM [Concomitant]
     Indication: GASTROOESOPHAGEAL REFLUX DISEASE
  7. ALBUTEROL [Concomitant]
     Indication: RESPIRATORY DISORDER
  8. BRIMONIDINE [Concomitant]
     Indication: GLAUCOMA
     Dosage: BOTH EYES
  9. MICARDIS [Concomitant]
     Indication: HYPERTENSION
  10. SYNTHROID [Concomitant]
     Indication: HYPOTHYROIDISM
  11. HYDROCHLOROTHIAZIDE [Concomitant]
     Indication: HYPERTENSION
  12. NITROGLYCERIN [Concomitant]
  13. AMERGE [Concomitant]
     Indication: MIGRAINE
  14. ZOPICLONE [Concomitant]
     Indication: SLEEP DISORDER
  15. EPIPEN [Concomitant]
     Indication: MULTIPLE ALLERGIES
  16. PREDNISOLONE [Concomitant]
     Indication: UVEITIS
     Dosage: RIGHT EYE

REACTIONS (6)
  - INSOMNIA [None]
  - INFUSION RELATED REACTION [None]
  - RESTLESS LEGS SYNDROME [None]
  - CARDIAC FLUTTER [None]
  - INAPPROPRIATE SCHEDULE OF DRUG ADMINISTRATION [None]
  - MUSCULOSKELETAL DISCOMFORT [None]
